FAERS Safety Report 16350404 (Version 1)
Quarter: 2019Q2

REPORT INFORMATION
  Report Type: Spontaneous
  Country: US (occurrence: US)
  Receive Date: 20190524
  Receipt Date: 20190524
  Transmission Date: 20190711
  Serious: No
  Sender: FDA-Public Use
  Company Number: US-ACCORD-097797

PATIENT
  Sex: Male

DRUGS (1)
  1. QUETIAPINE ACCORD [Suspect]
     Active Substance: QUETIAPINE
     Indication: INSOMNIA
     Dosage: STRENGTH: 300 MG

REACTIONS (2)
  - Drug ineffective [Unknown]
  - Off label use [Unknown]
